FAERS Safety Report 8529062-7 (Version None)
Quarter: 2012Q3

REPORT INFORMATION
  Report Type: 
  Country: None (occurrence: None)
  Receive Date: 20120716
  Receipt Date: 20120716
  Transmission Date: 20120928
  Serious: Yes (Other)
  Sender: FDA-Public Use
  Company Number: None

PATIENT
  Sex: Female
  Weight: 61.2356 kg

DRUGS (1)
  1. LISINOPRIL [Suspect]
     Indication: HYPERTENSION
     Dosage: 10 MG PILL ONCE A DAY TAB ASTR
     Dates: start: 20120620

REACTIONS (4)
  - FLATULENCE [None]
  - DISCOMFORT [None]
  - MUSCLE SPASMS [None]
  - DIARRHOEA [None]
